FAERS Safety Report 8915156 (Version 1)
Quarter: 2012Q4

REPORT INFORMATION
  Report Type: 
  Country: US (occurrence: US)
  Receive Date: 20121119
  Receipt Date: 20121119
  Transmission Date: 20130627
  Serious: No
  Sender: FDA-Public Use
  Company Number: US-ASTRAZENECA-2012SE84169

PATIENT
  Age: 89 Year
  Sex: Female
  Weight: 42.6 kg

DRUGS (3)
  1. NEXIUM [Suspect]
     Indication: PROPHYLAXIS AGAINST GASTROINTESTINAL ULCER
     Route: 048
     Dates: start: 2004, end: 20121031
  2. PRAVASTATIN [Concomitant]
     Indication: HYPERCHOLESTEROLAEMIA
     Route: 048
  3. BENICAR [Concomitant]
     Indication: HYPERTENSION
     Route: 048

REACTIONS (9)
  - Thirst [Unknown]
  - Lip dry [Unknown]
  - Dysphagia [Unknown]
  - Hypertension [Unknown]
  - Body height decreased [Unknown]
  - Vertigo [Unknown]
  - Dizziness [Unknown]
  - Dry mouth [Unknown]
  - Drug dose omission [Unknown]
